FAERS Safety Report 24322909 (Version 1)
Quarter: 2024Q3

REPORT INFORMATION
  Report Type: Spontaneous
  Country: AU (occurrence: AU)
  Receive Date: 20240916
  Receipt Date: 20240916
  Transmission Date: 20241017
  Serious: Yes (Hospitalization)
  Sender: NOVO NORDISK
  Company Number: None

PATIENT
  Age: 64 Year
  Sex: Female

DRUGS (2)
  1. SEMAGLUTIDE [Suspect]
     Active Substance: SEMAGLUTIDE
     Indication: Weight control
     Dosage: 0.25MG
     Dates: start: 20220516
  2. WEGOVY [Suspect]
     Active Substance: SEMAGLUTIDE

REACTIONS (2)
  - COVID-19 [Unknown]
  - Pancreatitis [Unknown]

NARRATIVE: CASE EVENT DATE: 20220620
